FAERS Safety Report 4347904-6 (Version None)
Quarter: 2004Q2

REPORT INFORMATION
  Report Type: 
  Country: None (occurrence: None)
  Receive Date: 20040422
  Receipt Date: 20040412
  Transmission Date: 20050107
  Serious: Yes (Hospitalization)
  Sender: FDA-Public Use
  Company Number: 163-20785-04040403

PATIENT
  Age: 45 Year
  Sex: Male
  Weight: 109.3169 kg

DRUGS (5)
  1. THALOMID [Suspect]
     Indication: BRAIN NEOPLASM
     Dosage: 500 MG, DAILY, ORAL; 200 MG, DAILY ORAL; 300 MG, DAILY ORAL; 400 MG, DAILY, ORAL
     Route: 048
     Dates: start: 20040315, end: 20040321
  2. THALOMID [Suspect]
     Indication: BRAIN NEOPLASM
     Dosage: 500 MG, DAILY, ORAL; 200 MG, DAILY ORAL; 300 MG, DAILY ORAL; 400 MG, DAILY, ORAL
     Route: 048
     Dates: start: 20040322, end: 20040328
  3. THALOMID [Suspect]
     Indication: BRAIN NEOPLASM
     Dosage: 500 MG, DAILY, ORAL; 200 MG, DAILY ORAL; 300 MG, DAILY ORAL; 400 MG, DAILY, ORAL
     Route: 048
     Dates: start: 20040329, end: 20040404
  4. THALOMID [Suspect]
     Indication: BRAIN NEOPLASM
     Dosage: 500 MG, DAILY, ORAL; 200 MG, DAILY ORAL; 300 MG, DAILY ORAL; 400 MG, DAILY, ORAL
     Route: 048
     Dates: start: 20040405, end: 20040407
  5. PROCARBAZINE (PROCARBAZINE) (CAPSULES) [Suspect]
     Indication: BRAIN NEOPLASM
     Dosage: 250 MG/M2, DAILY, ORAL
     Route: 048
     Dates: start: 20040315, end: 20040319

REACTIONS (9)
  - DYSARTHRIA [None]
  - FACIAL PALSY [None]
  - FALL [None]
  - GAIT DISTURBANCE [None]
  - HEADACHE [None]
  - HEMIPARESIS [None]
  - HYPOAESTHESIA [None]
  - NERVOUS SYSTEM DISORDER [None]
  - SOMNOLENCE [None]
